FAERS Safety Report 9432119 (Version 1)
Quarter: 2013Q3

REPORT INFORMATION
  Report Type: Spontaneous
  Country: US (occurrence: US)
  Receive Date: 20130731
  Receipt Date: 20130731
  Transmission Date: 20140515
  Serious: No
  Sender: FDA-Public Use
  Company Number: US-PFIZER INC-2013219575

PATIENT
  Age: 4 Year
  Sex: Male
  Weight: 18.8 kg

DRUGS (1)
  1. METHOTREXATE SODIUM [Suspect]

REACTIONS (1)
  - Drug intolerance [Unknown]
